FAERS Safety Report 9894485 (Version 1)
Quarter: 2014Q1

REPORT INFORMATION
  Report Type: Spontaneous
  Country: FR (occurrence: FR)
  Receive Date: 20140213
  Receipt Date: 20140213
  Transmission Date: 20141002
  Serious: Yes (Life-Threatening, Hospitalization)
  Sender: FDA-Public Use
  Company Number: FR-ASTRAZENECA-2014SE09812

PATIENT
  Age: 17157 Day
  Sex: Female

DRUGS (8)
  1. XEROQUEL [Suspect]
     Route: 048
     Dates: start: 201302
  2. XEROQUEL [Suspect]
     Route: 048
  3. SERESTA [Suspect]
     Route: 048
  4. SERESTA [Suspect]
     Route: 048
  5. MIANSERINE [Suspect]
     Route: 048
  6. MIANSERINE [Suspect]
     Route: 048
  7. NOCTAMIDE [Suspect]
     Route: 048
  8. NOCTAMIDE [Suspect]
     Route: 048

REACTIONS (4)
  - Suicide attempt [Recovered/Resolved]
  - Disinhibition [Unknown]
  - Depression [Unknown]
  - Intentional drug misuse [Unknown]
